FAERS Safety Report 6177468-6 (Version None)
Quarter: 2009Q2

REPORT INFORMATION
  Report Type: 
  Country: None (occurrence: None)
  Receive Date: 20090501
  Receipt Date: 20090501
  Transmission Date: 20091009
  Serious: No
  Sender: FDA-Public Use
  Company Number: None

PATIENT
  Age: 57 Year
  Sex: Female

DRUGS (13)
  1. PERCOCET [Suspect]
     Indication: PAIN
     Dosage: 3 TABLETS PO X 1
     Route: 048
     Dates: start: 20090325
  2. MORPHINE [Suspect]
     Indication: PAIN
     Dosage: 0/3/10 PCA
     Dates: start: 20090325
  3. HEP [Concomitant]
  4. CYCLOBENZAPRINE [Concomitant]
  5. DIAZEPAM [Concomitant]
  6. DULOXETINE [Concomitant]
  7. FENTANYL TRANSDERMAL SYSTEM [Concomitant]
  8. KETOROLAC [Concomitant]
  9. LEVOTHYROXINE SODIUM [Concomitant]
  10. EVISTA [Concomitant]
  11. NEXIUM [Concomitant]
  12. PREGABALIN [Concomitant]
  13. SENNA [Concomitant]

REACTIONS (3)
  - CONFUSIONAL STATE [None]
  - MULTIPLE SCLEROSIS [None]
  - OXYGEN SATURATION DECREASED [None]
